FAERS Safety Report 8867701 (Version 1)
Quarter: 2012Q4

REPORT INFORMATION
  Report Type: 
  Country: US (occurrence: US)
  Receive Date: 20121025
  Receipt Date: 20121025
  Transmission Date: 20130627
  Serious: No
  Sender: FDA-Public Use
  Company Number: US-AMGEN-USASP2012018233

PATIENT
  Age: 43 Year
  Sex: Male
  Weight: 90.7 kg

DRUGS (4)
  1. ENBREL [Suspect]
     Indication: PRODUCT USED FOR UNKNOWN INDICATION
     Dosage: 50 mg, qwk
     Route: 058
  2. ACEBUTOLOL [Concomitant]
     Dosage: 200 mg, UNK
  3. NORVASC [Concomitant]
     Dosage: 5 mg, UNK
  4. CRESTOR [Concomitant]
     Dosage: 10 mg, UNK

REACTIONS (2)
  - Pain [Unknown]
  - Therapeutic response decreased [Unknown]
